FAERS Safety Report 12048502 (Version 1)
Quarter: 2016Q1

REPORT INFORMATION
  Report Type: Spontaneous
  Country: JP (occurrence: JP)
  Receive Date: 20160208
  Receipt Date: 20160208
  Transmission Date: 20160526
  Serious: Yes (Life-Threatening, Hospitalization, Other)
  Sender: FDA-Public Use
  Company Number: JP-ELI_LILLY_AND_COMPANY-JP201512008825

PATIENT
  Age: 74 Year
  Sex: Female
  Weight: 55 kg

DRUGS (10)
  1. IKOREL [Concomitant]
     Active Substance: NICORANDIL
     Dosage: UNK
     Route: 065
  2. DILTIAZEM HYDROCHLORIDE. [Concomitant]
     Active Substance: DILTIAZEM HYDROCHLORIDE
     Dosage: UNK
     Route: 065
  3. NEXIUM [Concomitant]
     Active Substance: ESOMEPRAZOLE MAGNESIUM
     Indication: PROPHYLAXIS
     Dosage: 20 MG, QD
     Route: 048
     Dates: start: 20151216, end: 20151223
  4. PRASUGREL HYDROCHLORIDE [Suspect]
     Active Substance: PRASUGREL HYDROCHLORIDE
     Dosage: UNK
  5. BAYASPIRIN [Suspect]
     Active Substance: ASPIRIN
     Indication: ANGINA PECTORIS
     Dosage: 100 MG, QD
     Route: 048
     Dates: start: 20151216, end: 20151223
  6. PRASUGREL HYDROCHLORIDE [Suspect]
     Active Substance: PRASUGREL HYDROCHLORIDE
     Indication: CORONARY ARTERIAL STENT INSERTION
     Dosage: UNK
  7. HEPARIN [Suspect]
     Active Substance: HEPARIN SODIUM
     Indication: STENT PLACEMENT
     Dosage: 10000 IU, QD
     Route: 042
     Dates: start: 20151222, end: 20151223
  8. PRASUGREL HYDROCHLORIDE [Suspect]
     Active Substance: PRASUGREL HYDROCHLORIDE
     Indication: PERCUTANEOUS CORONARY INTERVENTION
     Dosage: 20 MG, QD
     Route: 048
     Dates: start: 20151222, end: 20151222
  9. RETICOLAN [Concomitant]
     Active Substance: METHYLCOBALAMIN
     Indication: PRODUCT USED FOR UNKNOWN INDICATION
     Dosage: 500 UG, BID
     Route: 048
     Dates: end: 20151223
  10. CELECOX [Concomitant]
     Active Substance: CELECOXIB
     Indication: PRODUCT USED FOR UNKNOWN INDICATION
     Dosage: 100 MG, BID
     Route: 048
     Dates: end: 20151223

REACTIONS (3)
  - Cerebral haemorrhage [Recovered/Resolved with Sequelae]
  - Hemiplegia [Unknown]
  - Depressed level of consciousness [Unknown]

NARRATIVE: CASE EVENT DATE: 20151223
